FAERS Safety Report 9543402 (Version 2)
Quarter: 2013Q3

REPORT INFORMATION
  Report Type: Spontaneous
  Country: US (occurrence: US)
  Receive Date: 20130923
  Receipt Date: 20130930
  Transmission Date: 20140515
  Serious: Yes (Other)
  Sender: FDA-Public Use
  Company Number: US-GILEAD-2013-0083852

PATIENT
  Sex: Female

DRUGS (2)
  1. LETAIRIS [Suspect]
     Indication: PULMONARY HYPERTENSION
     Dosage: 5 MG, QD
     Dates: start: 20080327
  2. OXYGEN [Concomitant]

REACTIONS (5)
  - Pneumonia [Unknown]
  - Epistaxis [Not Recovered/Not Resolved]
  - Nasal congestion [Unknown]
  - Wheezing [Unknown]
  - Cough [Unknown]
